FAERS Safety Report 13545603 (Version 4)
Quarter: 2018Q4

REPORT INFORMATION
  Report Type: Spontaneous
  Country: US (occurrence: US)
  Receive Date: 20170515
  Receipt Date: 20181107
  Transmission Date: 20190204
  Serious: No
  Sender: FDA-Public Use
  Company Number: US-PFIZER INC-2017211008

PATIENT
  Age: 60 Year
  Sex: Female
  Weight: 110.2 kg

DRUGS (4)
  1. GABAPENTIN. [Suspect]
     Active Substance: GABAPENTIN
     Indication: PAIN
     Dosage: 300 MG, DAILY (ONE CAPSULE ON DAY ONE)
     Route: 048
  2. GABAPENTIN. [Suspect]
     Active Substance: GABAPENTIN
     Dosage: 300 MG, 3X/DAY (THEN TAKE ONE CAP PO TID THEREAFTER)
     Route: 048
  3. GABAPENTIN. [Suspect]
     Active Substance: GABAPENTIN
     Indication: NEURALGIA
     Dosage: 300 MG, 2X/DAY (TAKE 1 CAP EVERY 12 HOURS ON DAY 2)
     Route: 048
  4. GABAPENTIN. [Suspect]
     Active Substance: GABAPENTIN
     Dosage: 300 MG, 3X/DAY
     Route: 048
     Dates: start: 20170330

REACTIONS (4)
  - Expired product administered [Unknown]
  - Insomnia [Unknown]
  - Dizziness [Unknown]
  - Drug ineffective for unapproved indication [Unknown]
